FAERS Safety Report 24397862 (Version 1)
Quarter: 2024Q4

REPORT INFORMATION
  Report Type: Spontaneous
  Country: US (occurrence: US)
  Receive Date: 20241004
  Receipt Date: 20241004
  Transmission Date: 20250115
  Serious: Yes (Other)
  Sender: PFIZER
  Company Number: US-PFIZER INC-202400270087

PATIENT
  Age: 73 Year
  Sex: Female

DRUGS (7)
  1. IBRANCE [Suspect]
     Active Substance: PALBOCICLIB
     Dosage: 100 MG, CYCLIC, 21 DAYS FOLLOWED BY 7 DAYS OFF
     Dates: start: 20230727
  2. CALCIUM [Concomitant]
     Active Substance: CALCIUM
     Dosage: CALCIUM/D 500/200
  3. FASLODEX [Concomitant]
     Active Substance: FULVESTRANT
     Dosage: FASLODEX 250/5ML
  4. SOLU-MEDROL [Concomitant]
     Active Substance: METHYLPREDNISOLONE SODIUM SUCCINATE
     Dosage: SOLU-MEDROL 125MG
  5. XGEVA [Concomitant]
     Active Substance: DENOSUMAB
     Dosage: XGEVA 120MG/1.7ML
  6. FLONASE [Concomitant]
     Active Substance: FLUTICASONE PROPIONATE
     Dosage: UNK
  7. CHOLECALCIFEROL [Concomitant]
     Active Substance: CHOLECALCIFEROL
     Dosage: VITAMIN D 1000 UNIT

REACTIONS (2)
  - Neutropenia [Unknown]
  - Weight decreased [Unknown]
